FAERS Safety Report 10478819 (Version 2)
Quarter: 2014Q4

REPORT INFORMATION
  Report Type: Spontaneous
  Country: US (occurrence: US)
  Receive Date: 20140926
  Receipt Date: 20141007
  Transmission Date: 20150528
  Serious: Yes (Hospitalization)
  Sender: FDA-Public Use
  Company Number: US-ACTELION-A-US2014-105717

PATIENT
  Age: 58 Year
  Sex: Male

DRUGS (3)
  1. VENTAVIS [Suspect]
     Active Substance: ILOPROST
     Indication: PULMONARY ARTERIAL HYPERTENSION
     Dosage: 5 MCG, 6-9X/DAY
     Route: 055
     Dates: start: 20140509
  2. WARFARIN [Concomitant]
     Active Substance: WARFARIN
  3. ADCIRCA [Concomitant]
     Active Substance: TADALAFIL

REACTIONS (3)
  - Haematoma [Recovering/Resolving]
  - Thrombosis [Recovering/Resolving]
  - Pain in extremity [Recovering/Resolving]

NARRATIVE: CASE EVENT DATE: 20140909
